FAERS Safety Report 5344055-9 (Version None)
Quarter: 2007Q2

REPORT INFORMATION
  Report Type: 
  Country: None (occurrence: None)
  Receive Date: 20070604
  Receipt Date: 20070530
  Transmission Date: 20071010
  Serious: Yes (Other)
  Sender: FDA-Public Use
  Company Number: A0653759A

PATIENT
  Age: 31 Year
  Sex: Female

DRUGS (3)
  1. ADVAIR DISKUS 100/50 [Suspect]
     Indication: DRUG USE FOR UNKNOWN INDICATION
     Route: 055
  2. COD LIVER OIL [Concomitant]
     Route: 065
  3. MULTIVITAMIN [Concomitant]
     Route: 065

REACTIONS (6)
  - CHEST DISCOMFORT [None]
  - DYSPNOEA [None]
  - MEDICATION ERROR [None]
  - PANIC REACTION [None]
  - TREMOR [None]
  - WHEEZING [None]
